FAERS Safety Report 7032969-3 (Version None)
Quarter: 2010Q4

REPORT INFORMATION
  Report Type: 
  Country: None (occurrence: None)
  Receive Date: 20101004
  Receipt Date: 20100928
  Transmission Date: 20110411
  Serious: Yes (Hospitalization)
  Sender: FDA-Public Use
  Company Number: 100171

PATIENT
  Age: 31 Year
  Sex: Female
  Weight: 40.8237 kg

DRUGS (1)
  1. HALFLYTELY [Suspect]
     Indication: COLONOSCOPY
     Dosage: 10MG/8OZ, 1X, PO
     Route: 048
     Dates: start: 20100808

REACTIONS (4)
  - ABDOMINAL PAIN [None]
  - DRUG HYPERSENSITIVITY [None]
  - HYPOAESTHESIA [None]
  - HYPOTONIA [None]
